FAERS Safety Report 8057963-5 (Version None)
Quarter: 2012Q1

REPORT INFORMATION
  Report Type: 
  Country: None (occurrence: None)
  Receive Date: 20120120
  Receipt Date: 20120117
  Transmission Date: 20120608
  Serious: No
  Sender: FDA-Public Use
  Company Number: US-PFIZER INC-2012013367

PATIENT
  Sex: Female
  Weight: 115.65 kg

DRUGS (5)
  1. LATANOPROST [Suspect]
     Indication: GLAUCOMA
     Dosage: UNK, 1X/DAY
     Route: 047
     Dates: start: 20120112
  2. AVAPRO [Concomitant]
     Dosage: UNK
  3. FLECAINIDE [Concomitant]
     Dosage: UNK
  4. LEVOTHYROXINE [Concomitant]
     Indication: HYPOTHYROIDISM
     Dosage: UNK
  5. BYSTOLIC [Concomitant]
     Dosage: UNK

REACTIONS (1)
  - EYE PRURITUS [None]
